FAERS Safety Report 8055546 (Version 2)
Quarter: 2014Q3

REPORT INFORMATION
  Report Type: Spontaneous
  Country: US (occurrence: US)
  Receive Date: 20110726
  Receipt Date: 20140918
  Transmission Date: 20150326
  Serious: Yes (Other)
  Sender: FDA-Public Use
  Company Number: US-ASTRAZENECA-2011SE42367

PATIENT
  Age: 73 Year
  Sex: Male
  Weight: 67.1 kg

DRUGS (15)
  1. PRILOSEC [Suspect]
     Active Substance: OMEPRAZOLE MAGNESIUM
     Indication: DYSPEPSIA
     Route: 048
     Dates: start: 1994
  2. LISINOPRIL - HYDROCHLORO [Suspect]
     Active Substance: HYDROCHLOROTHIAZIDE\LISINOPRIL
     Indication: CARDIAC DISORDER
     Dosage: 20-12.5MG DAILY
     Route: 048
     Dates: start: 200611
  3. CRESTOR [Suspect]
     Active Substance: ROSUVASTATIN CALCIUM
     Indication: ARTERIAL OCCLUSIVE DISEASE
     Route: 048
     Dates: start: 200611, end: 201401
  4. CRESTOR [Suspect]
     Active Substance: ROSUVASTATIN CALCIUM
     Indication: ARTERIAL OCCLUSIVE DISEASE
     Route: 048
     Dates: start: 201405, end: 201407
  5. VITAMIN D [Concomitant]
     Active Substance: CHOLECALCIFEROL
     Indication: ANAEMIA
     Route: 048
     Dates: start: 200611
  6. ATENOLOL. [Suspect]
     Active Substance: ATENOLOL
     Indication: HEART RATE INCREASED
     Route: 048
     Dates: start: 200611
  7. PRILOSEC [Suspect]
     Active Substance: OMEPRAZOLE MAGNESIUM
     Indication: GASTROOESOPHAGEAL REFLUX DISEASE
     Dosage: COULD TAKE A SECOND DOSE/SECOND DOSE TWICE
     Route: 048
  8. LISINOPRIL - HYDROCHLORO [Suspect]
     Active Substance: HYDROCHLOROTHIAZIDE\LISINOPRIL
     Indication: BLOOD PRESSURE INCREASED
     Dosage: 20-12.5MG DAILY
     Route: 048
     Dates: start: 200611
  9. CLOPIDOGREL [Concomitant]
     Active Substance: CLOPIDOGREL BISULFATE
     Indication: MYOCARDIAL INFARCTION
     Route: 048
     Dates: start: 200611
  10. OMEGA 3 [Concomitant]
     Active Substance: OMEGA-3 FATTY ACIDS
     Indication: CARDIAC DISORDER
     Route: 048
     Dates: start: 200611
  11. PRILOSEC [Suspect]
     Active Substance: OMEPRAZOLE MAGNESIUM
     Indication: GASTROOESOPHAGEAL REFLUX DISEASE
     Route: 048
     Dates: start: 1994
  12. NITROGLYCERIN. [Concomitant]
     Active Substance: NITROGLYCERIN
     Indication: MYOCARDIAL INFARCTION
     Route: 048
     Dates: start: 200611
  13. PRILOSEC [Suspect]
     Active Substance: OMEPRAZOLE MAGNESIUM
     Indication: DYSPEPSIA
     Dosage: COULD TAKE A SECOND DOSE/SECOND DOSE TWICE
     Route: 048
  14. ASPIRIN. [Concomitant]
     Active Substance: ASPIRIN
     Indication: MYOCARDIAL INFARCTION
     Route: 048
     Dates: start: 200611
  15. ATENOLOL. [Suspect]
     Active Substance: ATENOLOL
     Indication: BLOOD PRESSURE INCREASED
     Route: 048
     Dates: start: 200611

REACTIONS (9)
  - Treatment noncompliance [None]
  - Anaemia [Not Recovered/Not Resolved]
  - Blood pressure increased [Unknown]
  - Drug ineffective [Unknown]
  - Off label use [Not Recovered/Not Resolved]
  - Heart rate increased [Unknown]
  - Myocardial infarction [Unknown]
  - Dyspepsia [Recovered/Resolved]
  - Drug dose omission [Unknown]

NARRATIVE: CASE EVENT DATE: 200611
